FAERS Safety Report 7414280-1 (Version None)
Quarter: 2011Q2

REPORT INFORMATION
  Report Type: 
  Country: None (occurrence: None)
  Receive Date: 20110411
  Receipt Date: 20110411
  Transmission Date: 20111010
  Serious: Yes (Other)
  Sender: FDA-Public Use
  Company Number: None

PATIENT
  Age: 61 Year
  Sex: Female
  Weight: 63.5036 kg

DRUGS (1)
  1. OXISTAT [Suspect]
     Indication: ECZEMA
     Dosage: A DOT SIZE APPLIED ONCE ONCE
     Dates: start: 20110408, end: 20110408

REACTIONS (2)
  - PRURITUS [None]
  - BURNING SENSATION [None]
